FAERS Safety Report 4612206-7 (Version None)
Quarter: 2005Q1

REPORT INFORMATION
  Report Type: 
  Country: None (occurrence: None)
  Receive Date: 20050308
  Receipt Date: 20050113
  Transmission Date: 20050727
  Serious: Yes (Other)
  Sender: FDA-Public Use
  Company Number: 2004UW24032

PATIENT
  Age: 71 Year
  Sex: Female
  Weight: 77.11 kg

DRUGS (7)
  1. CRESTOR [Suspect]
     Indication: BLOOD CHOLESTEROL INCREASED
     Dosage: 10 MG PO
     Route: 048
     Dates: start: 20040301
  2. PRILOSEC [Concomitant]
  3. ULTRAM [Concomitant]
  4. ASPIRIN [Concomitant]
  5. TOPROL-XL [Concomitant]
  6. LIBRAX [Concomitant]
  7. CELEXA [Concomitant]

REACTIONS (1)
  - DYSURIA [None]
